FAERS Safety Report 21653147 (Version 1)
Quarter: 2022Q4

REPORT INFORMATION
  Report Type: Report from Study
  Country: US (occurrence: US)
  Receive Date: 20221128
  Receipt Date: 20221128
  Transmission Date: 20230113
  Serious: No
  Sender: FDA-Public Use
  Company Number: US-ABBVIE-4175586

PATIENT
  Sex: Female

DRUGS (1)
  1. ORILISSA [Suspect]
     Active Substance: ELAGOLIX SODIUM
     Indication: Product used for unknown indication
     Route: 048

REACTIONS (7)
  - Endometriosis [Unknown]
  - Bedridden [Unknown]
  - Uterine adhesions [Unknown]
  - Hyperhidrosis [Unknown]
  - Vomiting [Unknown]
  - Tremor [Unknown]
  - Insomnia [Unknown]
